FAERS Safety Report 6760042-8 (Version None)
Quarter: 2010Q2

REPORT INFORMATION
  Report Type: 
  Country: None (occurrence: None)
  Receive Date: 20100524
  Receipt Date: 20100201
  Transmission Date: 20101027
  Serious: No
  Sender: FDA-Public Use
  Company Number: 8034661

PATIENT
  Sex: Female
  Weight: 50.9 kg

DRUGS (6)
  1. CERTOLIZUMAB PEGOL [Suspect]
     Indication: CROHN'S DISEASE
     Dosage: (400 MG Q 2-WEEKS SUBCUTANEOUS) ; (400 MG ONCE MONTHLY SUBCUTANEOUS)
     Route: 058
     Dates: start: 20080623
  2. CERTOLIZUMAB PEGOL [Suspect]
     Indication: CROHN'S DISEASE
     Dosage: (400 MG Q 2-WEEKS SUBCUTANEOUS) ; (400 MG ONCE MONTHLY SUBCUTANEOUS)
     Route: 058
     Dates: start: 20081001
  3. ENTOCORT EC [Concomitant]
  4. CHOLESTYRAMINE [Concomitant]
  5. COLESTID [Concomitant]
  6. LEXAPRO [Concomitant]

REACTIONS (4)
  - ARTHRALGIA [None]
  - BODY TEMPERATURE INCREASED [None]
  - MOBILITY DECREASED [None]
  - PRURITUS [None]
